FAERS Safety Report 18444198 (Version 3)
Quarter: 2024Q1

REPORT INFORMATION
  Report Type: Spontaneous
  Country: US (occurrence: US)
  Receive Date: 20201030
  Receipt Date: 20240223
  Transmission Date: 20240410
  Serious: No
  Sender: FDA-Public Use
  Company Number: US-BIOGEN-2020BI00940587

PATIENT
  Age: 61 Year
  Sex: Female

DRUGS (1)
  1. TYSABRI [Suspect]
     Active Substance: NATALIZUMAB
     Indication: Multiple sclerosis
     Route: 050
     Dates: start: 20180809

REACTIONS (4)
  - Migraine [Unknown]
  - Speech disorder [Unknown]
  - Mobility decreased [Unknown]
  - Vertigo [Unknown]

NARRATIVE: CASE EVENT DATE: 20200227
